FAERS Safety Report 25230488 (Version 1)
Quarter: 2025Q2

REPORT INFORMATION
  Report Type: Spontaneous
  Country: US (occurrence: None)
  Receive Date: 20250422
  Receipt Date: 20250422
  Transmission Date: 20250717
  Serious: Yes (Disabling)
  Sender: FDA-CTU
  Company Number: None

PATIENT
  Age: 16 Year
  Sex: Female
  Weight: 76.5 kg

DRUGS (1)
  1. WEGOVY [Suspect]
     Active Substance: SEMAGLUTIDE
     Route: 050
     Dates: start: 20241201, end: 20250312

REACTIONS (3)
  - Visual impairment [None]
  - Blindness transient [None]
  - Loss of consciousness [None]

NARRATIVE: CASE EVENT DATE: 20250303
